FAERS Safety Report 10040884 (Version 1)
Quarter: 2014Q1

REPORT INFORMATION
  Report Type: Spontaneous
  Country: US (occurrence: US)
  Receive Date: 20140327
  Receipt Date: 20140327
  Transmission Date: 20141002
  Serious: No
  Sender: FDA-Public Use
  Company Number: US-PFIZER INC-2014079033

PATIENT
  Age: 61 Year
  Sex: 0

DRUGS (2)
  1. ZITHROMAX [Suspect]
     Dosage: UNK
     Route: 048
     Dates: start: 20130206
  2. AZITHROMYCIN [Suspect]
     Dosage: UNK
     Route: 048
     Dates: start: 20130206

REACTIONS (1)
  - Tachycardia [Unknown]
